FAERS Safety Report 6391171-9 (Version None)
Quarter: 2009Q4

REPORT INFORMATION
  Report Type: 
  Country: None (occurrence: None)
  Receive Date: 20091006
  Receipt Date: 20091006
  Transmission Date: 20100525
  Serious: Yes (Death)
  Sender: FDA-Public Use
  Company Number: None

PATIENT
  Age: 58 Year
  Sex: Male
  Weight: 86.3649 kg

DRUGS (7)
  1. ACTOS [Suspect]
     Indication: DIABETES MELLITUS
     Dosage: 15 MG DAILY PO
     Route: 048
     Dates: start: 20090710, end: 20090804
  2. GLUCOPHAGE [Concomitant]
  3. PRINIVIL [Concomitant]
  4. PRILOSEC [Concomitant]
  5. AMARYL [Concomitant]
  6. ALLOPURINOL [Concomitant]
  7. ASPIRIN [Concomitant]

REACTIONS (6)
  - CARDIAC DEATH [None]
  - CARDIAC DISORDER [None]
  - DYSPNOEA [None]
  - FATIGUE [None]
  - GOUT [None]
  - PAIN IN EXTREMITY [None]
